FAERS Safety Report 4521619-3 (Version None)
Quarter: 2004Q4

REPORT INFORMATION
  Report Type: 
  Country: None (occurrence: None)
  Receive Date: 20041209
  Receipt Date: 20041130
  Transmission Date: 20050328
  Serious: Yes (Other)
  Sender: FDA-Public Use
  Company Number: US-JNJFOC-20041002232

PATIENT
  Age: 36 Year
  Sex: Female
  Weight: 70.31 kg

DRUGS (4)
  1. REMICADE [Suspect]
     Indication: CROHN'S DISEASE
     Dosage: 350MG
     Route: 042
  2. TYLENOL (CAPLET) [Concomitant]
     Route: 049
  3. PREDNISONE [Concomitant]
  4. BENADRYL [Concomitant]

REACTIONS (7)
  - ARTHRALGIA [None]
  - INFLUENZA LIKE ILLNESS [None]
  - MALAISE [None]
  - MYALGIA [None]
  - NAUSEA [None]
  - PYREXIA [None]
  - VOMITING [None]
